FAERS Safety Report 10704138 (Version 1)
Quarter: 2015Q1

REPORT INFORMATION
  Report Type: Spontaneous
  Country: SE (occurrence: SE)
  Receive Date: 20150112
  Receipt Date: 20150112
  Transmission Date: 20150721
  Serious: Yes (Other)
  Sender: FDA-Public Use
  Company Number: SE-TEVA-533543ISR

PATIENT
  Sex: Female

DRUGS (1)
  1. METHOTREXATE (METHOTREXATE SODIUM) [Suspect]
     Active Substance: METHOTREXATE SODIUM
     Route: 065
     Dates: end: 20130815

REACTIONS (11)
  - Diarrhoea [Unknown]
  - Polyneuropathy [Unknown]
  - Visual impairment [Unknown]
  - Arthralgia [Unknown]
  - Dizziness [Unknown]
  - Pneumonia [Unknown]
  - Vision blurred [Unknown]
  - Alopecia [Unknown]
  - Depression [Unknown]
  - Balance disorder [Unknown]
  - Infection susceptibility increased [Unknown]
